FAERS Safety Report 11204275 (Version 1)
Quarter: 2015Q2

REPORT INFORMATION
  Report Type: Spontaneous
  Country: US (occurrence: US)
  Receive Date: 20150620
  Receipt Date: 20150620
  Transmission Date: 20150821
  Serious: No
  Sender: FDA-Public Use
  Company Number: US-009507513-1506USA006923

PATIENT
  Sex: Female

DRUGS (1)
  1. STERILE DILUENT [Suspect]
     Active Substance: WATER
     Dosage: 2 ML/PER DAY
     Dates: start: 20150610

REACTIONS (3)
  - No adverse event [Unknown]
  - Product quality issue [Unknown]
  - Accidental exposure to product [Unknown]
